FAERS Safety Report 12364014 (Version 1)
Quarter: 2016Q2

REPORT INFORMATION
  Report Type: Spontaneous
  Country: GB (occurrence: GB)
  Receive Date: 20160512
  Receipt Date: 20160512
  Transmission Date: 20160815
  Serious: Yes (Other)
  Sender: FDA-Public Use
  Company Number: GB-SA-2016SA090151

PATIENT
  Age: 55 Year
  Sex: Female
  Weight: 84 kg

DRUGS (6)
  1. INDAPAMIDE. [Suspect]
     Active Substance: INDAPAMIDE
     Route: 065
     Dates: start: 20160425
  2. DOMPERIDONE [Concomitant]
     Active Substance: DOMPERIDONE
     Dosage: THREE TIMES DAILY
     Dates: start: 20151214
  3. AMITRIPTYLINE HYDROCHLORIDE. [Concomitant]
     Active Substance: AMITRIPTYLINE HYDROCHLORIDE
     Dosage: AT NIGHT (HALF TABLET)
     Dates: start: 20160331, end: 20160414
  4. IBUPROFEN. [Concomitant]
     Active Substance: IBUPROFEN
     Dosage: APPLY 2-3 TIMES A DAY
     Dates: start: 20160120
  5. COCODAMOL [Concomitant]
     Active Substance: ACETAMINOPHEN\CODEINE PHOSPHATE
     Dosage: FOUR TIMES DAILY
     Dates: start: 20150527
  6. RANITIDINE. [Concomitant]
     Active Substance: RANITIDINE
     Dates: start: 20150527

REACTIONS (2)
  - Skin burning sensation [Recovering/Resolving]
  - Pruritus [Recovering/Resolving]

NARRATIVE: CASE EVENT DATE: 20160425
